FAERS Safety Report 25036368 (Version 1)
Quarter: 2025Q1

REPORT INFORMATION
  Report Type: Spontaneous
  Country: BE (occurrence: BE)
  Receive Date: 20250304
  Receipt Date: 20250304
  Transmission Date: 20250409
  Serious: Yes (Hospitalization, Other)
  Sender: Haleon PLC
  Company Number: BE-HALEON-2165798

PATIENT
  Age: 90 Year
  Sex: Male

DRUGS (7)
  1. VOLTAREN [Suspect]
     Active Substance: DICLOFENAC SODIUM
     Indication: Sciatica
     Route: 030
     Dates: start: 20240302
  2. VOLTAREN [Suspect]
     Active Substance: DICLOFENAC SODIUM
     Indication: Pain
  3. JARDIANCE [Concomitant]
     Active Substance: EMPAGLIFLOZIN
     Indication: Product used for unknown indication
     Dates: start: 20231108
  4. EDOXABAN TOSYLATE [Concomitant]
     Active Substance: EDOXABAN TOSYLATE
     Indication: Product used for unknown indication
     Dates: start: 20210707
  5. CINACALCET HYDROCHLORIDE [Concomitant]
     Active Substance: CINACALCET HYDROCHLORIDE
     Indication: Product used for unknown indication
     Dates: start: 20230608
  6. SPIRONOLACTONE [Concomitant]
     Active Substance: SPIRONOLACTONE
     Indication: Product used for unknown indication
     Dates: start: 20231111
  7. CHOLECALCIFEROL [Concomitant]
     Active Substance: CHOLECALCIFEROL
     Indication: Product used for unknown indication

REACTIONS (18)
  - Gastric ulcer [Unknown]
  - Cardiac failure acute [Unknown]
  - Respiratory rate decreased [Unknown]
  - Chest pain [Unknown]
  - Pulmonary valve incompetence [Unknown]
  - Fluid retention [Unknown]
  - Ascites [Unknown]
  - Abdominal pain upper [Unknown]
  - Right atrial dilatation [Unknown]
  - Pleural effusion [Unknown]
  - Left atrial dilatation [Unknown]
  - Dyspnoea [Unknown]
  - Mitral valve incompetence [Unknown]
  - Oedema peripheral [Unknown]
  - Inferior vena cava dilatation [Unknown]
  - Tricuspid valve incompetence [Unknown]
  - Aortic valve incompetence [Unknown]
  - Left ventricular hypertrophy [Unknown]

NARRATIVE: CASE EVENT DATE: 20240306
